APPROVED DRUG PRODUCT: INDAPAMIDE
Active Ingredient: INDAPAMIDE
Strength: 2.5MG
Dosage Form/Route: TABLET;ORAL
Application: A074585 | Product #002
Applicant: WATSON LABORATORIES INC
Approved: Sep 26, 1996 | RLD: No | RS: No | Type: DISCN